FAERS Safety Report 16099065 (Version 5)
Quarter: 2019Q3

REPORT INFORMATION
  Report Type: Report from Study
  Country: US (occurrence: US)
  Receive Date: 20190321
  Receipt Date: 20190807
  Transmission Date: 20191004
  Serious: Yes (Hospitalization, Other)
  Sender: FDA-Public Use
  Company Number: PHEH2019US011669

PATIENT
  Sex: Female

DRUGS (2)
  1. LISINOPRIL. [Suspect]
     Active Substance: LISINOPRIL
     Indication: BLOOD PRESSURE ABNORMAL
     Route: 065
  2. TASIGNA [Suspect]
     Active Substance: NILOTINIB
     Indication: PRODUCT USED FOR UNKNOWN INDICATION
     Dosage: 300 MG, BID
     Route: 048

REACTIONS (11)
  - Nasopharyngitis [Unknown]
  - Leukaemia [Unknown]
  - Crying [Unknown]
  - Pain [Unknown]
  - Fear of disease [Unknown]
  - Weight decreased [Unknown]
  - Coma [Unknown]
  - Immune system disorder [Unknown]
  - Anaphylactic shock [Unknown]
  - Arthritis [Not Recovered/Not Resolved]
  - Drug intolerance [Unknown]
